FAERS Safety Report 8889079 (Version 1)
Quarter: 2012Q4

REPORT INFORMATION
  Report Type: Report from Study
  Country: JP (occurrence: JP)
  Receive Date: 20121106
  Receipt Date: 20121106
  Transmission Date: 20130627
  Serious: Yes (Hospitalization, Other)
  Sender: FDA-Public Use
  Company Number: JP-CELGENEUS-087-50794-12110411

PATIENT
  Age: 75 Year
  Sex: Male
  Weight: 50 kg

DRUGS (84)
  1. VIDAZA [Suspect]
     Indication: MYELODYSPLASTIC SYNDROME
     Dosage: 75 milligram/sq. meter
     Route: 058
     Dates: start: 20110421, end: 20110427
  2. VIDAZA [Suspect]
     Dosage: 75 milligram/sq. meter
     Route: 058
     Dates: start: 20110519, end: 20110525
  3. VIDAZA [Suspect]
     Dosage: 75 milligram/sq. meter
     Route: 058
     Dates: start: 20110616, end: 20110622
  4. VIDAZA [Suspect]
     Dosage: 75 milligram/sq. meter
     Route: 058
     Dates: start: 20110714, end: 20110720
  5. VIDAZA [Suspect]
     Dosage: 75 milligram/sq. meter
     Route: 058
     Dates: start: 20110811, end: 20110817
  6. VIDAZA [Suspect]
     Dosage: 75 milligram/sq. meter
     Route: 058
     Dates: start: 20110908, end: 20110914
  7. VIDAZA [Suspect]
     Dosage: 75 milligram/sq. meter
     Route: 058
     Dates: start: 20111006, end: 20111012
  8. CYLOCIDE [Concomitant]
     Indication: DRUG USE FOR UNKNOWN INDICATION
     Route: 065
     Dates: start: 20111026, end: 20111108
  9. MAGMITT [Concomitant]
     Indication: DRUG USE FOR UNKNOWN INDICATION
     Route: 065
     Dates: start: 20110420, end: 20110531
  10. MAGMITT [Concomitant]
     Route: 065
     Dates: start: 20110615, end: 20110701
  11. MAGMITT [Concomitant]
     Route: 065
     Dates: start: 20110714, end: 20111115
  12. AZUNOL [Concomitant]
     Indication: DRUG USE FOR UNKNOWN INDICATION
     Route: 065
     Dates: start: 20110615
  13. KYTRIL [Concomitant]
     Indication: DRUG USE FOR UNKNOWN INDICATION
     Route: 065
     Dates: start: 20110421, end: 20110511
  14. KYTRIL [Concomitant]
     Route: 065
     Dates: start: 20110520, end: 20110526
  15. KYTRIL [Concomitant]
     Route: 065
     Dates: start: 20110617, end: 20110623
  16. KYTRIL [Concomitant]
     Route: 065
     Dates: start: 20110720, end: 20110727
  17. KYTRIL [Concomitant]
     Route: 065
     Dates: start: 20110812, end: 20110817
  18. KYTRIL [Concomitant]
     Route: 065
     Dates: start: 20110909, end: 20110914
  19. KYTRIL [Concomitant]
     Route: 065
     Dates: start: 20111006, end: 20111018
  20. BASEN [Concomitant]
     Indication: DRUG USE FOR UNKNOWN INDICATION
     Route: 065
     Dates: start: 20110420, end: 20110726
  21. BASEN [Concomitant]
     Route: 065
     Dates: end: 20111115
  22. PURSENNID [Concomitant]
     Indication: DRUG USE FOR UNKNOWN INDICATION
     Route: 065
     Dates: start: 20110511, end: 20110531
  23. PURSENNID [Concomitant]
     Route: 065
     Dates: start: 20110615, end: 20110701
  24. PURSENNID [Concomitant]
     Route: 065
     Dates: start: 20110714, end: 20110815
  25. PURSENNID [Concomitant]
     Route: 065
     Dates: start: 20110818, end: 20111115
  26. LENDORMIN D [Concomitant]
     Indication: DRUG USE FOR UNKNOWN INDICATION
     Route: 065
     Dates: start: 20110420, end: 20110531
  27. LENDORMIN D [Concomitant]
     Route: 065
     Dates: start: 20110615, end: 20110701
  28. LENDORMIN D [Concomitant]
     Route: 065
     Dates: start: 20110714, end: 20111118
  29. XALATAN [Concomitant]
     Indication: DRUG USE FOR UNKNOWN INDICATION
     Route: 065
  30. XALATAN [Concomitant]
     Route: 065
     Dates: start: 20111015
  31. MOHRUS [Concomitant]
     Indication: DRUG USE FOR UNKNOWN INDICATION
     Route: 065
     Dates: start: 20110516
  32. MOHRUS [Concomitant]
     Route: 065
     Dates: start: 20110911
  33. MOHRUS [Concomitant]
     Route: 065
     Dates: start: 20111012
  34. DETANTOL [Concomitant]
     Indication: DRUG USE FOR UNKNOWN INDICATION
     Route: 065
  35. DETANTOL [Concomitant]
     Route: 065
     Dates: start: 20111015
  36. CHLOR-TRIMETON [Concomitant]
     Indication: DRUG USE FOR UNKNOWN INDICATION
     Route: 065
     Dates: start: 20110426, end: 20110426
  37. CHLOR-TRIMETON [Concomitant]
     Route: 065
     Dates: start: 20110503, end: 20110503
  38. CHLOR-TRIMETON [Concomitant]
     Route: 065
     Dates: start: 20110509, end: 20110509
  39. CHLOR-TRIMETON [Concomitant]
     Route: 065
     Dates: start: 20110516, end: 20110516
  40. CHLOR-TRIMETON [Concomitant]
     Route: 065
     Dates: start: 20110523, end: 20110523
  41. CHLOR-TRIMETON [Concomitant]
     Route: 065
     Dates: start: 20111006, end: 20111006
  42. CHLOR-TRIMETON [Concomitant]
     Route: 065
     Dates: start: 20111118, end: 20111118
  43. BIOFERMIN [Concomitant]
     Indication: DRUG USE FOR UNKNOWN INDICATION
     Route: 065
     Dates: start: 20110523, end: 20110531
  44. BIOFERMIN [Concomitant]
     Route: 065
     Dates: start: 20110728, end: 20111115
  45. PRIMPERAN [Concomitant]
     Indication: DRUG USE FOR UNKNOWN INDICATION
     Route: 065
     Dates: start: 20110519, end: 20110521
  46. PRIMPERAN [Concomitant]
     Route: 065
     Dates: start: 20110522, end: 20110525
  47. PRIMPERAN [Concomitant]
     Route: 065
     Dates: start: 20110617, end: 20110622
  48. PRIMPERAN [Concomitant]
     Route: 065
     Dates: start: 20110714, end: 20110714
  49. PRIMPERAN [Concomitant]
     Route: 065
     Dates: start: 20110718, end: 20110720
  50. BASEN OD [Concomitant]
     Indication: DRUG USE FOR UNKNOWN INDICATION
     Route: 065
     Dates: start: 20110526, end: 20110531
  51. BASEN OD [Concomitant]
     Route: 065
     Dates: start: 20110716
  52. NEO-MINOPHAGEN C [Concomitant]
     Indication: DRUG USE FOR UNKNOWN INDICATION
     Route: 065
     Dates: start: 20110530, end: 20110530
  53. NEO-MINOPHAGEN C [Concomitant]
     Route: 065
     Dates: start: 20110606, end: 20110606
  54. NEO-MINOPHAGEN C [Concomitant]
     Route: 065
     Dates: start: 20111118, end: 20111118
  55. SOL-MELCORT [Concomitant]
     Indication: DRUG USE FOR UNKNOWN INDICATION
     Route: 065
     Dates: start: 20110530, end: 20110530
  56. SOL-MELCORT [Concomitant]
     Route: 065
     Dates: start: 20110606, end: 20110606
  57. SOL-MELCORT [Concomitant]
     Route: 065
     Dates: start: 20110608, end: 20110608
  58. SOL-MELCORT [Concomitant]
     Route: 065
     Dates: start: 20110613, end: 20110613
  59. SOL-MELCORT [Concomitant]
     Route: 065
     Dates: start: 20110617, end: 20110816
  60. HYDROCORTONE [Concomitant]
     Indication: DRUG USE FOR UNKNOWN INDICATION
     Route: 065
     Dates: start: 20110530, end: 20110530
  61. HYDROCORTONE [Concomitant]
     Route: 065
     Dates: start: 20110608, end: 20110608
  62. HYDROCORTONE [Concomitant]
     Route: 065
     Dates: start: 20111012, end: 20111114
  63. JANUVIA [Concomitant]
     Indication: DRUG USE FOR UNKNOWN INDICATION
     Route: 065
     Dates: start: 20110722, end: 20111115
  64. CALONAL [Concomitant]
     Indication: DRUG USE FOR UNKNOWN INDICATION
     Route: 065
     Dates: start: 20110717
  65. CALONAL [Concomitant]
     Route: 065
     Dates: start: 20111027, end: 20111028
  66. CALONAL [Concomitant]
     Route: 065
     Dates: start: 20111105, end: 20111105
  67. FEBURIC [Concomitant]
     Indication: DRUG USE FOR UNKNOWN INDICATION
     Route: 065
     Dates: start: 20111030, end: 20111115
  68. LAXOBERON [Concomitant]
     Indication: DRUG USE FOR UNKNOWN INDICATION
     Route: 065
     Dates: start: 20111028
  69. ALOXI [Concomitant]
     Indication: DRUG USE FOR UNKNOWN INDICATION
     Route: 065
     Dates: start: 20111026, end: 20111026
  70. ACLACINON [Concomitant]
     Indication: DRUG USE FOR UNKNOWN INDICATION
     Route: 065
     Dates: start: 20111026, end: 20111029
  71. LASIX [Concomitant]
     Indication: DRUG USE FOR UNKNOWN INDICATION
     Route: 065
     Dates: start: 20111027, end: 20111120
  72. MUCOSTA [Concomitant]
     Indication: DRUG USE FOR UNKNOWN INDICATION
     Route: 065
     Dates: start: 20111110, end: 20111113
  73. LOXONIN [Concomitant]
     Indication: DRUG USE FOR UNKNOWN INDICATION
     Route: 065
     Dates: start: 20111106, end: 20111113
  74. ROPION [Concomitant]
     Indication: DRUG USE FOR UNKNOWN INDICATION
     Route: 065
     Dates: start: 20111114, end: 20111114
  75. HUMULIN R [Concomitant]
     Indication: DRUG USE FOR UNKNOWN INDICATION
     Route: 065
     Dates: start: 20111111, end: 20111120
  76. HEPAFLUSH [Concomitant]
     Indication: DRUG USE FOR UNKNOWN INDICATION
     Route: 065
     Dates: start: 20111007, end: 20111120
  77. MAXIPIME [Concomitant]
     Indication: DRUG USE FOR UNKNOWN INDICATION
     Route: 065
     Dates: start: 20111007, end: 20111010
  78. MAXIPIME [Concomitant]
     Route: 065
     Dates: start: 20111028, end: 20111031
  79. MAXIPIME [Concomitant]
     Route: 065
     Dates: start: 20111106, end: 20111111
  80. VENILON-I [Concomitant]
     Indication: DRUG USE FOR UNKNOWN INDICATION
     Route: 065
     Dates: start: 20111114, end: 20111116
  81. MEROPEN [Concomitant]
     Indication: DRUG USE FOR UNKNOWN INDICATION
     Route: 065
     Dates: start: 20111109, end: 20111118
  82. FUNGUARD [Concomitant]
     Indication: DRUG USE FOR UNKNOWN INDICATION
     Route: 065
     Dates: start: 20111114, end: 20111120
  83. FINIBAX [Concomitant]
     Indication: DRUG USE FOR UNKNOWN INDICATION
     Route: 065
     Dates: start: 20111118, end: 20111120
  84. VANCOMYCIN [Concomitant]
     Indication: DRUG USE FOR UNKNOWN INDICATION
     Route: 065
     Dates: start: 20111118, end: 20111120

REACTIONS (3)
  - Diabetes mellitus [Recovered/Resolved]
  - Febrile neutropenia [Recovering/Resolving]
  - Anaemia [Not Recovered/Not Resolved]
